FAERS Safety Report 5777890-3 (Version None)
Quarter: 2008Q2

REPORT INFORMATION
  Report Type: 
  Country: None (occurrence: None)
  Receive Date: 20080618
  Receipt Date: 20080603
  Transmission Date: 20081010
  Serious: Yes (Death)
  Sender: FDA-Public Use
  Company Number: FR-GENENTECH-262298

PATIENT
  Sex: Male

DRUGS (5)
  1. BEVACIZUMAB [Suspect]
     Indication: COLORECTAL CANCER METASTATIC
     Dosage: 375 MG, Q3W
     Route: 042
     Dates: start: 20070320
  2. BEVACIZUMAB [Suspect]
     Dosage: 575 MG/KG, Q3W
     Route: 042
  3. BEVACIZUMAB [Suspect]
     Dosage: 375 MG, UNK
     Route: 042
  4. ERLOTINIB [Suspect]
     Indication: COLORECTAL CANCER METASTATIC
     Dosage: 150 MG, Q3W
     Route: 048
  5. OXALIPLATIN [Suspect]
     Indication: COLORECTAL CANCER METASTATIC
     Dosage: 180 MG, Q2W
     Route: 042
     Dates: start: 20070320

REACTIONS (1)
  - DEATH [None]
